FAERS Safety Report 24865472 (Version 1)
Quarter: 2025Q1

REPORT INFORMATION
  Report Type: Spontaneous
  Country: US (occurrence: US)
  Receive Date: 20250121
  Receipt Date: 20250121
  Transmission Date: 20250409
  Serious: Yes (Death, Other)
  Sender: BRISTOL-MYERS SQUIBB COMPANY
  Company Number: US-BRISTOL-MYERS SQUIBB COMPANY-2025-008035

PATIENT
  Age: 56 Year
  Sex: Male
  Weight: 118.84 kg

DRUGS (2)
  1. POMALYST [Suspect]
     Active Substance: POMALIDOMIDE
     Indication: Plasma cell myeloma
     Route: 048
  2. XPOVIO [Concomitant]
     Active Substance: SELINEXOR
     Indication: Plasma cell myeloma
     Dosage: 80MG ORALLY FOR 3 WEEKS ON, THEN 1 WEEK OFF
     Route: 048
     Dates: start: 20241022

REACTIONS (1)
  - Death [Fatal]
